FAERS Safety Report 8208749-X (Version None)
Quarter: 2012Q1

REPORT INFORMATION
  Report Type: 
  Country: None (occurrence: None)
  Receive Date: 20120314
  Receipt Date: 20120312
  Transmission Date: 20120608
  Serious: Yes (Other)
  Sender: FDA-Public Use
  Company Number: US-PFIZER INC-2012065367

PATIENT
  Sex: Female
  Weight: 78.912 kg

DRUGS (7)
  1. VENLAFAXINE HCL [Suspect]
     Indication: DEPRESSION
     Dosage: 225 MG, 1X/DAY
     Route: 048
     Dates: start: 20110901, end: 20110901
  2. EFFEXOR XR [Suspect]
     Indication: ANXIETY
     Dosage: 225 MG, 1X/DAY
     Route: 048
     Dates: start: 20110901
  3. VENLAFAXINE HCL [Suspect]
     Indication: ANXIETY
  4. CLONAZEPAM [Concomitant]
     Indication: ANXIETY
     Dosage: UNK
  5. EFFEXOR XR [Suspect]
     Indication: DEPRESSION
     Dosage: 225 MG, 1X/DAY
     Route: 048
     Dates: start: 20100101, end: 20110901
  6. EFFEXOR XR [Suspect]
     Indication: PANIC ATTACK
  7. VENLAFAXINE HCL [Suspect]
     Indication: PANIC ATTACK

REACTIONS (9)
  - DIARRHOEA [None]
  - MALAISE [None]
  - GASTRIC ULCER [None]
  - NAUSEA [None]
  - IRRITABLE BOWEL SYNDROME [None]
  - GASTRIC DISORDER [None]
  - DYSPEPSIA [None]
  - ABDOMINAL PAIN UPPER [None]
  - HYPERSENSITIVITY [None]
